FAERS Safety Report 8962100 (Version 1)
Quarter: 2012Q4

REPORT INFORMATION
  Report Type: 
  Country: US (occurrence: US)
  Receive Date: 20121212
  Receipt Date: 20121212
  Transmission Date: 20130627
  Serious: No
  Sender: FDA-Public Use
  Company Number: US-PFIZER INC-2012309173

PATIENT
  Age: 67 Year
  Sex: Female
  Weight: 99.77 kg

DRUGS (1)
  1. GENOTROPIN [Suspect]
     Indication: PITUITARY DISORDER
     Dosage: 0.4 mg, 1x/day
     Route: 058
     Dates: start: 2011

REACTIONS (5)
  - Arthralgia [Unknown]
  - Gait disturbance [Unknown]
  - Fatigue [Unknown]
  - Weight decreased [Unknown]
  - Weight increased [Unknown]
